FAERS Safety Report 25624399 (Version 1)
Quarter: 2025Q3

REPORT INFORMATION
  Report Type: Spontaneous
  Country: JP (occurrence: JP)
  Receive Date: 20250730
  Receipt Date: 20250730
  Transmission Date: 20251020
  Serious: Yes (Hospitalization)
  Sender: EISAI
  Company Number: JP-Eisai-EC-2025-194074

PATIENT
  Sex: Female

DRUGS (8)
  1. LENVIMA [Suspect]
     Active Substance: LENVATINIB
     Indication: Endometrial cancer
  2. LENVIMA [Suspect]
     Active Substance: LENVATINIB
     Dates: start: 20230413, end: 20230420
  3. LENVIMA [Suspect]
     Active Substance: LENVATINIB
     Dates: start: 20230427
  4. LENVIMA [Suspect]
     Active Substance: LENVATINIB
     Dates: start: 20230720
  5. LENVIMA [Suspect]
     Active Substance: LENVATINIB
  6. LENVIMA [Suspect]
     Active Substance: LENVATINIB
  7. KEYTRUDA [Suspect]
     Active Substance: PEMBROLIZUMAB
     Indication: Endometrial cancer
  8. LEVOTHYROXINE SODIUM [Concomitant]
     Active Substance: LEVOTHYROXINE SODIUM

REACTIONS (2)
  - Adrenal insufficiency [Recovering/Resolving]
  - Palmar-plantar erythrodysaesthesia syndrome [Unknown]
